APPROVED DRUG PRODUCT: EVEROLIMUS
Active Ingredient: EVEROLIMUS
Strength: 2MG
Dosage Form/Route: TABLET, FOR SUSPENSION;ORAL
Application: A217216 | Product #001 | TE Code: AB
Applicant: BIOCON PHARMA LTD
Approved: Jan 9, 2026 | RLD: No | RS: No | Type: RX